FAERS Safety Report 7243733-4 (Version None)
Quarter: 2011Q1

REPORT INFORMATION
  Report Type: 
  Country: None (occurrence: None)
  Receive Date: 20110125
  Receipt Date: 20110114
  Transmission Date: 20110831
  Serious: Yes (Life-Threatening, Hospitalization)
  Sender: FDA-Public Use
  Company Number: CA-PFIZER INC-2010174767

PATIENT
  Age: 78 Year
  Sex: Female
  Weight: 73.016 kg

DRUGS (14)
  1. RENEDIL [Concomitant]
     Dosage: 10 MG, 1X/DAY
     Route: 048
  2. CALCIUM [Concomitant]
     Dosage: 500 MG, 3X/DAY
     Route: 048
  3. RAMIPRIL [Concomitant]
     Dosage: 20 MG, 1X/DAY
     Route: 048
  4. LESCOL [Concomitant]
     Dosage: 20 MG, 1X/DAY
     Route: 048
  5. ZOPICLONE [Concomitant]
     Dosage: 7.5 MG, AS NEEDED AT BEDTIME
  6. MULTI-VITAMINS [Concomitant]
     Dosage: 1 CAPSULE, 1X/DAY
     Route: 048
  7. VITAMIN D [Concomitant]
     Dosage: 1000 MG, 1X/DAY
     Route: 048
  8. EXEMESTANE [Suspect]
     Indication: BREAST CANCER
     Dosage: 25 MG, 1X/DAY
     Route: 048
     Dates: start: 20051214
  9. ATENOLOL [Concomitant]
     Dosage: 25 MG, 1X/DAY
     Route: 048
  10. HYDROCHLOROTHIAZIDE [Concomitant]
     Dosage: 50 MG, 1X/DAY
     Route: 048
  11. FOLIC ACID [Concomitant]
     Dosage: 1 CAPSULE, 1X/DAY
  12. FISH OIL [Concomitant]
     Dosage: 1 CAPSULE, 1X/DAY
     Route: 048
  13. VITAMIN B-12 [Concomitant]
     Dosage: 1 CAPSULE, 1X/DAY
  14. ASCORBIC ACID [Concomitant]
     Dosage: 500 MG, 1X/DAY
     Route: 048

REACTIONS (1)
  - CEREBROVASCULAR ACCIDENT [None]
